FAERS Safety Report 5929299-7 (Version None)
Quarter: 2008Q4

REPORT INFORMATION
  Report Type: 
  Country: None (occurrence: None)
  Receive Date: 20081023
  Receipt Date: 20081023
  Transmission Date: 20090506
  Serious: Yes (Other)
  Sender: FDA-Public Use
  Company Number: None

PATIENT
  Sex: Female
  Weight: 62.1428 kg

DRUGS (3)
  1. CITIRIZINE HYDROCHLORIDE [Suspect]
     Indication: HOUSE DUST ALLERGY
     Dosage: 1 TABLET DAILY AS NEEDED PO
     Route: 048
     Dates: start: 20080910, end: 20081015
  2. CITIRIZINE HYDROCHLORIDE [Suspect]
     Indication: MYCOTIC ALLERGY
     Dosage: 1 TABLET DAILY AS NEEDED PO
     Route: 048
     Dates: start: 20080910, end: 20081015
  3. CITIRIZINE HYDROCHLORIDE [Suspect]
     Indication: SEASONAL ALLERGY
     Dosage: 1 TABLET DAILY AS NEEDED PO
     Route: 048
     Dates: start: 20080910, end: 20081015

REACTIONS (1)
  - DEPRESSION [None]
